FAERS Safety Report 26043043 (Version 1)
Quarter: 2025Q4

REPORT INFORMATION
  Report Type: Spontaneous
  Country: US (occurrence: US)
  Receive Date: 20251113
  Receipt Date: 20251113
  Transmission Date: 20260118
  Serious: No
  Sender: ANI
  Company Number: US-ANIPHARMA-2025-US-047310

PATIENT
  Age: 51 Year
  Sex: Female
  Weight: 154.22 kg

DRUGS (16)
  1. ZYRTEC [Concomitant]
     Active Substance: CETIRIZINE HYDROCHLORIDE
  2. SYNTHROID [Concomitant]
     Active Substance: LEVOTHYROXINE SODIUM
  3. FAMOTIDINE [Concomitant]
     Active Substance: FAMOTIDINE
  4. ESTRADIOL [Concomitant]
     Active Substance: ESTRADIOL
  5. VITAMIN D3 [Concomitant]
     Active Substance: CHOLECALCIFEROL
  6. NURTEC ODT [Concomitant]
     Active Substance: RIMEGEPANT SULFATE
  7. PREDNISONE [Concomitant]
     Active Substance: PREDNISONE
  8. METHOCARBAMOL [Concomitant]
     Active Substance: METHOCARBAMOL
  9. PLAQUENIL [Concomitant]
     Active Substance: HYDROXYCHLOROQUINE SULFATE
  10. PROGESTERONE [Concomitant]
     Active Substance: PROGESTERONE
  11. NEBIVOLOL [Concomitant]
     Active Substance: NEBIVOLOL
  12. BoFlex albuterol [Concomitant]
  13. FUROSEMIDE\POTASSIUM CHLORIDE [Concomitant]
     Active Substance: FUROSEMIDE\POTASSIUM CHLORIDE
  14. EPIPEN [Concomitant]
     Active Substance: EPINEPHRINE
  15. TRAMADOL [Concomitant]
     Active Substance: TRAMADOL
  16. CORTICOTROPIN [Suspect]
     Active Substance: CORTICOTROPIN
     Indication: Systemic lupus erythematosus
     Dosage: INJECT 0.5 ML SQ THREE TIMES WEEK 1, TWICE WEEK THE SECOND WEE, AND ONCE WEEKLY
     Dates: start: 20250926, end: 20251016

REACTIONS (3)
  - Blood glucose increased [Not Recovered/Not Resolved]
  - Nausea [Not Recovered/Not Resolved]
  - Diarrhoea [Not Recovered/Not Resolved]

NARRATIVE: CASE EVENT DATE: 20250926
